FAERS Safety Report 6911442-4 (Version None)
Quarter: 2010Q3

REPORT INFORMATION
  Report Type: 
  Country: None (occurrence: None)
  Receive Date: 20100806
  Receipt Date: 20100729
  Transmission Date: 20110219
  Serious: Yes (Disabling, Other)
  Sender: FDA-Public Use
  Company Number: GXKR2010US08561

PATIENT
  Age: 70 Year
  Sex: Female

DRUGS (6)
  1. OXALIPLATIN [Suspect]
     Indication: RECTAL CANCER
     Dosage: 85 MG/M2, INFUSED OVER 2 HOURS
  2. CAPECITABINE [Concomitant]
     Indication: RECTAL CANCER
  3. ONDANSETRON [Concomitant]
     Indication: PREMEDICATION
     Route: 042
  4. DEXAMETHASONE [Concomitant]
     Indication: PREMEDICATION
     Route: 042
  5. CALCIUM [Concomitant]
     Indication: PREMEDICATION
  6. MAGNESIUM [Concomitant]
     Indication: PREMEDICATION

REACTIONS (4)
  - DEAFNESS NEUROSENSORY [None]
  - DEAFNESS UNILATERAL [None]
  - DYSKINESIA [None]
  - PAIN [None]
